FAERS Safety Report 4993298-2 (Version None)
Quarter: 2006Q2

REPORT INFORMATION
  Report Type: 
  Country: None (occurrence: None)
  Receive Date: 20060505
  Receipt Date: 20050926
  Transmission Date: 20061013
  Serious: Yes (Other)
  Sender: FDA-Public Use
  Company Number: PHEH2005US10693

PATIENT
  Sex: Female

DRUGS (3)
  1. AREDIA [Suspect]
     Dates: start: 19980801
  2. ZOMETA [Suspect]
  3. TUMS [Concomitant]
     Dosage: UNK, BID

REACTIONS (2)
  - JAW DISORDER [None]
  - OSTEONECROSIS [None]
